FAERS Safety Report 5107677-6 (Version None)
Quarter: 2006Q3

REPORT INFORMATION
  Report Type: 
  Country: None (occurrence: None)
  Receive Date: 20060919
  Receipt Date: 20060629
  Transmission Date: 20061208
  Serious: Yes (Hospitalization)
  Sender: FDA-Public Use
  Company Number: DE-BAYER-200610843BVD

PATIENT
  Age: 44 Year
  Sex: Female
  Weight: 66 kg

DRUGS (16)
  1. AVELOX [Suspect]
     Indication: RESPIRATORY TRACT INFECTION
     Route: 048
     Dates: start: 20060529
  2. IBUHEXAL [Concomitant]
     Route: 048
     Dates: start: 20060415
  3. PODOMEXEF [Concomitant]
     Route: 048
     Dates: start: 20060606
  4. NYSTATIN [Concomitant]
     Route: 048
     Dates: start: 20060616
  5. TELFAST [Concomitant]
     Indication: URTICARIA
     Route: 048
     Dates: start: 20060621
  6. TELFAST [Concomitant]
     Route: 048
     Dates: start: 20060620
  7. PEDNISOLUT [Concomitant]
     Indication: URTICARIA
     Route: 030
     Dates: start: 20060628
  8. PEDNISOLUT [Concomitant]
     Route: 042
     Dates: start: 20060621
  9. PEDNISOLUT [Concomitant]
     Route: 042
     Dates: start: 20060620
  10. PREDNIHEXAL [Concomitant]
     Route: 048
     Dates: start: 20060628
  11. PREDNIHEXAL [Concomitant]
     Route: 048
     Dates: start: 20060628
  12. PANTOZOL [Concomitant]
     Route: 048
     Dates: start: 20060628
  13. AERIUS [Concomitant]
     Route: 048
     Dates: start: 20060628
  14. ARCOXIA [Concomitant]
     Route: 048
     Dates: start: 20060628
  15. NOVAMINSULFON-RATIOPHARM [Concomitant]
     Route: 048
     Dates: start: 20060628
  16. ASPIRIN [Concomitant]

REACTIONS (11)
  - ABDOMINAL PAIN [None]
  - ANAPHYLACTIC REACTION [None]
  - ARTHRALGIA [None]
  - CIRCULATORY COLLAPSE [None]
  - COLITIS [None]
  - DIARRHOEA [None]
  - FATIGUE [None]
  - GASTRITIS [None]
  - PAIN [None]
  - SLEEP DISORDER [None]
  - URTICARIA [None]
